FAERS Safety Report 9161008 (Version 2)
Quarter: 2013Q2

REPORT INFORMATION
  Report Type: Spontaneous
  Country: US (occurrence: US)
  Receive Date: 20130313
  Receipt Date: 20130418
  Transmission Date: 20140414
  Serious: No
  Sender: FDA-Public Use
  Company Number: US-PFIZER INC-2013084148

PATIENT
  Age: 72 Year
  Sex: Female
  Weight: 93.42 kg

DRUGS (10)
  1. LIPITOR [Suspect]
     Indication: BLOOD CHOLESTEROL INCREASED
     Dosage: 20 MG, 1X/DAY
     Route: 048
     Dates: end: 2012
  2. ATORVASTATIN [Suspect]
     Indication: BLOOD CHOLESTEROL INCREASED
     Dosage: 20 MG, 1X/DAY
     Route: 048
     Dates: start: 2012, end: 201303
  3. NEXIUM [Concomitant]
     Dosage: UNK
  4. CETIRIZINE [Concomitant]
     Dosage: UNK
  5. HYDROCHLOROTHIAZIDE [Concomitant]
     Dosage: UNK
  6. BETIMOL [Concomitant]
     Indication: EYE DISORDER
     Dosage: UNK
  7. PAROXETINE [Concomitant]
     Dosage: UNK
  8. ALPRAZOLAM [Concomitant]
     Dosage: UNK
  9. PROAIR HFA [Concomitant]
     Dosage: UNK
  10. ASPIRIN [Concomitant]
     Dosage: UNK, 1X/DAY

REACTIONS (1)
  - Pruritus [Recovered/Resolved]
